FAERS Safety Report 5955448-0 (Version None)
Quarter: 2008Q4

REPORT INFORMATION
  Report Type: 
  Country: None (occurrence: None)
  Receive Date: 20081031
  Receipt Date: 20080722
  Transmission Date: 20090506
  Serious: No
  Sender: FDA-Public Use
  Company Number: 2008PV036248

PATIENT
  Age: 19 Year
  Sex: Female

DRUGS (4)
  1. SYMLIN [Suspect]
     Indication: TYPE 1 DIABETES MELLITUS
     Dosage: 45 MCG; TID; SC, 30 MCG; TID; SC, 15 MCG; TID; SC
     Route: 058
     Dates: start: 20080714, end: 20080716
  2. SYMLIN [Suspect]
     Indication: TYPE 1 DIABETES MELLITUS
     Dosage: 45 MCG; TID; SC, 30 MCG; TID; SC, 15 MCG; TID; SC
     Route: 058
     Dates: start: 20080717, end: 20080719
  3. SYMLIN [Suspect]
     Indication: TYPE 1 DIABETES MELLITUS
     Dosage: 45 MCG; TID; SC, 30 MCG; TID; SC, 15 MCG; TID; SC
     Route: 058
     Dates: start: 20080720
  4. HUMALOG [Concomitant]

REACTIONS (4)
  - BLOOD GLUCOSE DECREASED [None]
  - FATIGUE [None]
  - HYPOAESTHESIA ORAL [None]
  - NAUSEA [None]
